FAERS Safety Report 10042678 (Version 2)
Quarter: 2014Q1

REPORT INFORMATION
  Report Type: Report from Study
  Country: AR (occurrence: AR)
  Receive Date: 20140327
  Receipt Date: 20140327
  Transmission Date: 20141002
  Serious: Yes (Death, Hospitalization)
  Sender: FDA-Public Use
  Company Number: PHHY2013AR049164

PATIENT
  Age: 70 Year
  Sex: Male

DRUGS (4)
  1. XOLAIR [Suspect]
     Indication: ASTHMA
     Dosage: 150 MG, UNK
     Route: 058
  2. XOLAIR [Suspect]
     Dosage: UNK
     Route: 058
     Dates: end: 201303
  3. DIOVAN [Suspect]
     Dosage: 320 MG, UNK
  4. ANTIHYPERTENSIVES [Concomitant]
     Indication: HYPERTENSION
     Dosage: UNK

REACTIONS (2)
  - Death [Fatal]
  - Haemorrhagic stroke [Not Recovered/Not Resolved]
